FAERS Safety Report 6821846-6 (Version None)
Quarter: 2010Q3

REPORT INFORMATION
  Report Type: 
  Country: None (occurrence: None)
  Receive Date: 20100708
  Receipt Date: 20100630
  Transmission Date: 20110219
  Serious: Yes (Hospitalization)
  Sender: FDA-Public Use
  Company Number: US-BIOGENIDEC-2010BI022189

PATIENT
  Age: 54 Year
  Sex: Female

DRUGS (3)
  1. AVONEX [Suspect]
     Indication: MULTIPLE SCLEROSIS
     Route: 030
     Dates: start: 20090101
  2. AVONEX [Suspect]
     Route: 030
     Dates: end: 20030701
  3. AVONEX [Suspect]
     Route: 030
     Dates: start: 20030801

REACTIONS (3)
  - CYSTOPEXY [None]
  - HYSTERECTOMY [None]
  - UMBILICAL HERNIA REPAIR [None]
